FAERS Safety Report 8562087-4 (Version None)
Quarter: 2012Q3

REPORT INFORMATION
  Report Type: 
  Country: None (occurrence: None)
  Receive Date: 20120802
  Receipt Date: 20120705
  Transmission Date: 20120928
  Serious: No
  Sender: FDA-Public Use
  Company Number: US-AMGEN-USASP2012041671

PATIENT
  Age: 33 Year
  Sex: Female

DRUGS (1)
  1. ENBREL [Suspect]
     Indication: RHEUMATOID ARTHRITIS
     Dosage: 50 MG, QWK
     Dates: start: 20120617

REACTIONS (7)
  - FATIGUE [None]
  - NAUSEA [None]
  - INJECTION SITE PAIN [None]
  - ASTHENIA [None]
  - ARTHRALGIA [None]
  - HEADACHE [None]
  - OEDEMA PERIPHERAL [None]
